FAERS Safety Report 16102080 (Version 1)
Quarter: 2019Q1

REPORT INFORMATION
  Report Type: Spontaneous
  Country: RU (occurrence: RU)
  Receive Date: 20190321
  Receipt Date: 20190321
  Transmission Date: 20190418
  Serious: No
  Sender: FDA-Public Use
  Company Number: RU-B. BRAUN MEDICAL INC.-2064391

PATIENT
  Age: 37 Year
  Sex: Female
  Weight: 74 kg

DRUGS (4)
  1. TRIMEPERIDIN [Concomitant]
  2. SODIUM CHLORIDE INJECTIONS USP 0264-7800-00 0264-7800-10 [Suspect]
     Active Substance: SODIUM CHLORIDE
  3. IRON [III] HYDROXIDE POLYMALTOSE [Concomitant]
  4. DIPHENHYDRAMINE. [Concomitant]
     Active Substance: DIPHENHYDRAMINE

REACTIONS (3)
  - Pruritus [None]
  - Oropharyngeal pain [None]
  - Urticaria [None]
